FAERS Safety Report 17632762 (Version 3)
Quarter: 2023Q1

REPORT INFORMATION
  Report Type: Spontaneous
  Country: US (occurrence: US)
  Receive Date: 20200406
  Receipt Date: 20230126
  Transmission Date: 20230418
  Serious: No
  Sender: FDA-Public Use
  Company Number: US-PFIZER INC-2020137056

PATIENT
  Age: 47 Year
  Sex: Female
  Weight: 87.54 kg

DRUGS (2)
  1. XELJANZ [Suspect]
     Active Substance: TOFACITINIB CITRATE
     Indication: Psoriatic arthropathy
     Dosage: 5 MG TWICE A DAY
     Route: 048
     Dates: end: 202001
  2. XELJANZ [Suspect]
     Active Substance: TOFACITINIB CITRATE
     Indication: Rheumatoid arthritis

REACTIONS (1)
  - Drug ineffective [Recovered/Resolved]
